FAERS Safety Report 10055092 (Version 2)
Quarter: 2014Q2

REPORT INFORMATION
  Report Type: Spontaneous
  Country: US (occurrence: US)
  Receive Date: 20140402
  Receipt Date: 20140402
  Transmission Date: 20141212
  Serious: No
  Sender: FDA-Public Use
  Company Number: US-SANOFI-AVENTIS-2013SA022467

PATIENT
  Age: 62 Year
  Sex: Female

DRUGS (5)
  1. AUBAGIO [Suspect]
     Indication: MULTIPLE SCLEROSIS
     Route: 048
     Dates: start: 20130207, end: 20131001
  2. AUBAGIO [Suspect]
     Indication: MULTIPLE SCLEROSIS
     Route: 048
     Dates: start: 20130207, end: 20131001
  3. ANTIHYPERTENSIVES [Concomitant]
     Indication: HYPERTENSION
  4. LOSARTAN [Concomitant]
  5. FAMPRIDINE [Concomitant]

REACTIONS (5)
  - Productive cough [Not Recovered/Not Resolved]
  - Vomiting [Unknown]
  - Back pain [Not Recovered/Not Resolved]
  - Nasal inflammation [Not Recovered/Not Resolved]
  - Nausea [Unknown]
